FAERS Safety Report 6336819-X (Version None)
Quarter: 2009Q3

REPORT INFORMATION
  Report Type: 
  Country: None (occurrence: None)
  Receive Date: 20090831
  Receipt Date: 20090831
  Transmission Date: 20100115
  Serious: Yes (Other)
  Sender: FDA-Public Use
  Company Number: None

PATIENT
  Age: 18 Year
  Sex: Female
  Weight: 47.6277 kg

DRUGS (1)
  1. XIFAXAN [Suspect]
     Dosage: 1 TABLETS 3 TIMES A DAY PO
     Route: 048
     Dates: start: 20090825, end: 20090828

REACTIONS (1)
  - HOMICIDAL IDEATION [None]
